FAERS Safety Report 6993135-0 (Version None)
Quarter: 2010Q3

REPORT INFORMATION
  Report Type: 
  Country: None (occurrence: None)
  Receive Date: 20100917
  Receipt Date: 20100914
  Transmission Date: 20110219
  Serious: Yes (Death)
  Sender: FDA-Public Use
  Company Number: IT-TEVA-248515ISR

PATIENT
  Sex: Male

DRUGS (5)
  1. OXALIPLATIN [Suspect]
     Indication: COLON CANCER METASTATIC
     Route: 042
     Dates: start: 20100430, end: 20100802
  2. DEXAMETHASONE SODIUM PHOSPHATE [Concomitant]
     Route: 042
     Dates: start: 20100430, end: 20100802
  3. TROPISETRON HYDROCHLORIDE [Concomitant]
     Route: 042
     Dates: start: 20100430, end: 20100802
  4. FLUOROURACIL [Concomitant]
     Route: 042
     Dates: start: 20100430, end: 20100718
  5. CALCIUM FOLINATE [Concomitant]
     Route: 042
     Dates: start: 20100430, end: 20100802

REACTIONS (4)
  - CARDIO-RESPIRATORY ARREST [None]
  - HAEMOGLOBIN DECREASED [None]
  - LOSS OF CONSCIOUSNESS [None]
  - PAIN [None]
